FAERS Safety Report 14572864 (Version 2)
Quarter: 2019Q2

REPORT INFORMATION
  Report Type: Report from Study
  Country: US (occurrence: US)
  Receive Date: 20180226
  Receipt Date: 20190426
  Transmission Date: 20190711
  Serious: Yes (Life-Threatening, Hospitalization, Other)
  Sender: FDA-Public Use
  Company Number: US-PFIZER INC-2017473995

PATIENT
  Age: 59 Year
  Sex: Female
  Weight: 91 kg

DRUGS (4)
  1. IBRANCE [Suspect]
     Active Substance: PALBOCICLIB
     Dosage: 125 MG, CYCLIC (FOR 21 DAYS AND THEN OFF FOR 7 DAYS)
     Route: 048
     Dates: start: 201711
  2. IBRANCE [Suspect]
     Active Substance: PALBOCICLIB
     Indication: BREAST CANCER FEMALE
     Dosage: 125 MG, CYCLIC (ONCE DAILY, 21 DAYS AND THEN OFF 7)
     Route: 048
     Dates: start: 20171023, end: 20171120
  3. IBRANCE [Suspect]
     Active Substance: PALBOCICLIB
     Dosage: 100 MG, UNK
     Route: 048
  4. LETROZOLE. [Concomitant]
     Active Substance: LETROZOLE
     Indication: OESTROGEN THERAPY
     Dosage: 2.5 MG, 1X/DAY
     Route: 048
     Dates: start: 20171014

REACTIONS (7)
  - Full blood count decreased [Not Recovered/Not Resolved]
  - Anaemia [Recovering/Resolving]
  - White blood cell count decreased [Recovering/Resolving]
  - Insomnia [Not Recovered/Not Resolved]
  - Neutropenia [Recovering/Resolving]
  - Drug intolerance [Unknown]
  - Pruritus [Recovered/Resolved]

NARRATIVE: CASE EVENT DATE: 2017
